FAERS Safety Report 4598190-3 (Version None)
Quarter: 2005Q1

REPORT INFORMATION
  Report Type: 
  Country: None (occurrence: None)
  Receive Date: 20050301
  Receipt Date: 20050301
  Transmission Date: 20050727
  Serious: Yes (Hospitalization)
  Sender: FDA-Public Use
  Company Number: None

PATIENT
  Sex: Male

DRUGS (20)
  1. WARFARIN      2 MG [Suspect]
     Indication: DEEP VEIN THROMBOSIS
     Dosage: 2 MG   DAILY    ORAL
     Route: 048
  2. ALBUTEROL [Concomitant]
  3. CARBIDOPA AND LEVODOPA [Concomitant]
  4. CITALOPRAM [Concomitant]
  5. DOCUSATE [Concomitant]
  6. FELODIPINE [Concomitant]
  7. FENTANYL [Concomitant]
  8. FERROUS SULFATE TAB [Concomitant]
  9. GEMFIBROZIL [Concomitant]
  10. IPRATROPIUM BROMIDE [Concomitant]
  11. ISOSORBIDE MONONITRATE [Concomitant]
  12. OMEPRAZOLE [Concomitant]
  13. OXYCODONE AND ACETAMINOPHEN [Concomitant]
  14. RIMANTADINE HCL [Concomitant]
  15. SENNA [Concomitant]
  16. SIMVASTATIN [Concomitant]
  17. TEMAZEPAM [Concomitant]
  18. THEOPHYLLINE [Concomitant]
  19. ENOXAPARIN [Concomitant]
  20. ASPIRIN [Concomitant]

REACTIONS (2)
  - EPISTAXIS [None]
  - NASAL SEPTUM PERFORATION [None]
